FAERS Safety Report 21801479 (Version 1)
Quarter: 2022Q4

REPORT INFORMATION
  Report Type: Spontaneous
  Country: NL (occurrence: None)
  Receive Date: 20221230
  Receipt Date: 20221230
  Transmission Date: 20230112
  Serious: Yes (Life-Threatening)
  Sender: FDA-Public Use
  Company Number: 2022A418086

PATIENT
  Sex: Female
  Weight: 60 kg

DRUGS (4)
  1. OSIMERTINIB [Suspect]
     Active Substance: OSIMERTINIB
     Indication: Product used for unknown indication
     Route: 065
     Dates: start: 20220826, end: 20221213
  2. ENALAPRIL [Concomitant]
     Active Substance: ENALAPRIL
     Route: 065
  3. OXYCODONE [Concomitant]
     Active Substance: OXYCODONE
     Dosage: 2X 10MG
     Route: 065
  4. GABAPENTIN [Concomitant]
     Active Substance: GABAPENTIN
     Dosage: 3X 600MG
     Route: 065

REACTIONS (10)
  - Scab [Recovering/Resolving]
  - Cough [Recovering/Resolving]
  - Feeling cold [Recovering/Resolving]
  - Listless [Recovering/Resolving]
  - Oesophageal discomfort [Recovering/Resolving]
  - Skin exfoliation [Recovering/Resolving]
  - Diarrhoea [Recovering/Resolving]
  - Skin fissures [Recovering/Resolving]
  - Rash [Recovering/Resolving]
  - Alopecia [Recovering/Resolving]
